FAERS Safety Report 8991085 (Version 1)
Quarter: 2012Q4

REPORT INFORMATION
  Report Type: 
  Country: US (occurrence: US)
  Receive Date: 20121231
  Receipt Date: 20121231
  Transmission Date: 20130627
  Serious: Yes (Other)
  Sender: FDA-Public Use
  Company Number: US-BRISTOL-MYERS SQUIBB COMPANY-17235037

PATIENT
  Age: 64 Year
  Sex: Female
  Weight: 63.49 kg

DRUGS (12)
  1. METFORMIN HCL [Suspect]
     Dates: end: 201112
  2. LIPITOR [Suspect]
     Dates: end: 2012
  3. ARIMIDEX [Concomitant]
  4. HERCEPTIN [Concomitant]
     Route: 042
  5. VITAMIN D3 [Concomitant]
  6. CALCIUM + VITAMIN D [Concomitant]
  7. VITAMIN B [Concomitant]
  8. METAMUCIL [Concomitant]
  9. POTASSIUM [Concomitant]
  10. HCTZ [Concomitant]
  11. TYLENOL [Concomitant]
     Indication: MYALGIA
  12. NEURONTIN [Concomitant]
     Indication: MYALGIA

REACTIONS (1)
  - Breast cancer [Unknown]
